FAERS Safety Report 10666086 (Version 4)
Quarter: 2015Q1

REPORT INFORMATION
  Report Type: Spontaneous
  Country: JP (occurrence: JP)
  Receive Date: 20141219
  Receipt Date: 20150127
  Transmission Date: 20150720
  Serious: Yes (Other)
  Sender: FDA-Public Use
  Company Number: JP-009507513-1412JPN009051

PATIENT
  Age: 69 Year
  Sex: Female
  Weight: 54 kg

DRUGS (9)
  1. REBETOL [Suspect]
     Active Substance: RIBAVIRIN
     Dosage: 200 MG, 1 IN 1 DAY
     Route: 048
     Dates: start: 20141202
  2. PEGINTRON [Suspect]
     Active Substance: PEGINTERFERON ALFA-2B
     Indication: CHRONIC HEPATITIS C
     Dosage: 100 MICROGRAM, PER WEEK (1 IN 1 WEEK)
     Route: 058
     Dates: start: 20140812
  3. REBETOL [Suspect]
     Active Substance: RIBAVIRIN
     Dosage: 200 MG, ONE PER DAY (1 IN 1 DAY)
     Route: 048
     Dates: start: 20141118, end: 2014
  4. SIMEPREVIR [Suspect]
     Active Substance: SIMEPREVIR
     Indication: CHRONIC HEPATITIS C
     Dosage: 100 MG, ONCE A DAY
     Route: 048
     Dates: start: 20140812, end: 20141104
  5. REBETOL [Suspect]
     Active Substance: RIBAVIRIN
     Indication: CHRONIC HEPATITIS C
     Dosage: 400 MG, ONE PER DAY (1 IN 1 DAY)
     Route: 048
     Dates: start: 20140812, end: 2014
  6. COBALOKININ [Suspect]
     Active Substance: LOXOPROFEN SODIUM
     Indication: CHILLS
  7. REBETOL [Suspect]
     Active Substance: RIBAVIRIN
     Dosage: 100 MG, ONCE PER DAY
     Route: 048
     Dates: start: 2014, end: 2014
  8. COBALOKININ [Suspect]
     Active Substance: LOXOPROFEN SODIUM
     Indication: PYREXIA
     Dosage: 60 MG, AS NEEDED (IN 1 AS NECESSARY)
     Route: 048
     Dates: start: 20140812
  9. COBALOKININ [Suspect]
     Active Substance: LOXOPROFEN SODIUM
     Indication: PROCTALGIA

REACTIONS (14)
  - Hepatitis C [Not Recovered/Not Resolved]
  - Hyaluronic acid increased [Unknown]
  - Nausea [Recovering/Resolving]
  - Proctalgia [Recovering/Resolving]
  - Red blood cell count decreased [Unknown]
  - Drug ineffective [Unknown]
  - Chills [Recovering/Resolving]
  - Blood bilirubin increased [Recovering/Resolving]
  - Platelet count decreased [Recovering/Resolving]
  - Aspartate aminotransferase abnormal [Not Recovered/Not Resolved]
  - Alanine aminotransferase abnormal [Not Recovered/Not Resolved]
  - Pyrexia [Recovering/Resolving]
  - Haemoglobin decreased [Unknown]
  - White blood cell count decreased [Not Recovered/Not Resolved]

NARRATIVE: CASE EVENT DATE: 2014
